FAERS Safety Report 15253378 (Version 2)
Quarter: 2018Q3

REPORT INFORMATION
  Report Type: Spontaneous
  Country: JP (occurrence: JP)
  Receive Date: 20180808
  Receipt Date: 20180829
  Transmission Date: 20181010
  Serious: Yes (Other)
  Sender: FDA-Public Use
  Company Number: JP-SUN PHARMACEUTICAL INDUSTRIES LTD-2018RR-180789

PATIENT
  Age: 63 Year
  Sex: Female
  Weight: 56.6 kg

DRUGS (5)
  1. GEFITINIB. [Suspect]
     Active Substance: GEFITINIB
     Indication: LUNG ADENOCARCINOMA STAGE IV
     Dosage: 250 MG, DAILY, EVERY OTHER DAY
     Route: 065
     Dates: start: 201408
  2. PACLITAXEL. [Suspect]
     Active Substance: PACLITAXEL
     Indication: LUNG ADENOCARCINOMA
     Dosage: 200 MG/M2, UNK
     Route: 065
     Dates: start: 201511
  3. CARBOPLATIN. [Suspect]
     Active Substance: CARBOPLATIN
     Indication: LUNG ADENOCARCINOMA
     Dosage: 400 MG/M2, UNK
     Route: 065
     Dates: start: 201511
  4. PEMETREXED. [Suspect]
     Active Substance: PEMETREXED
     Indication: LUNG ADENOCARCINOMA
     Dosage: 500 MG/M2, SIX COURSES
     Route: 065
     Dates: start: 201606
  5. GEFITINIB. [Suspect]
     Active Substance: GEFITINIB
     Dosage: 250 MG, DAILY, EVERY OTHER DAY
     Route: 065
     Dates: start: 201601

REACTIONS (6)
  - Neutropenia [Unknown]
  - Neuropathy peripheral [Unknown]
  - Disease progression [Unknown]
  - Decreased appetite [Unknown]
  - Therapy partial responder [Unknown]
  - Liver injury [Unknown]
